FAERS Safety Report 12682377 (Version 2)
Quarter: 2016Q3

REPORT INFORMATION
  Report Type: Spontaneous
  Country: PK (occurrence: PK)
  Receive Date: 20160825
  Receipt Date: 20160826
  Transmission Date: 20161109
  Serious: Yes (Death, Other)
  Sender: FDA-Public Use
  Company Number: PK-ROCHE-1819445

PATIENT
  Age: 27 Year
  Sex: Female

DRUGS (1)
  1. XELODA [Suspect]
     Active Substance: CAPECITABINE
     Indication: BREAST CANCER
     Route: 048
     Dates: start: 20160803, end: 20160809

REACTIONS (2)
  - Brain neoplasm [Fatal]
  - Vomiting [Unknown]

NARRATIVE: CASE EVENT DATE: 20160812
